FAERS Safety Report 11298683 (Version 1)
Quarter: 2015Q3

REPORT INFORMATION
  Report Type: Spontaneous
  Country: US (occurrence: US)
  Receive Date: 20150722
  Receipt Date: 20150722
  Transmission Date: 20151125
  Serious: No
  Sender: FDA-Public Use
  Company Number: US-ELI_LILLY_AND_COMPANY-US201202007161

PATIENT
  Sex: Male

DRUGS (1)
  1. HUMATROPE [Suspect]
     Active Substance: SOMATROPIN
     Indication: DWARFISM
     Dosage: 1.6 MG, QD
     Dates: start: 200905

REACTIONS (3)
  - Drug ineffective [Unknown]
  - Insulin-like growth factor decreased [Unknown]
  - Incorrect product storage [Unknown]
